FAERS Safety Report 5586255-9 (Version None)
Quarter: 2007Q4

REPORT INFORMATION
  Report Type: 
  Country: None (occurrence: None)
  Receive Date: 20071212
  Receipt Date: 20070514
  Transmission Date: 20080405
  Serious: Yes (Hospitalization, Other)
  Sender: FDA-Public Use
  Company Number: USA-2007-0027349

PATIENT
  Sex: Male

DRUGS (2)
  1. OXYCONTIN [Suspect]
     Indication: ARTHRITIS
     Dosage: 40 MG, Q12H, ORAL
     Route: 048
  2. VALIUM [Concomitant]

REACTIONS (4)
  - ACCIDENTAL OVERDOSE [None]
  - DRUG DEPENDENCE [None]
  - MEMORY IMPAIRMENT [None]
  - THROAT IRRITATION [None]
